FAERS Safety Report 11388711 (Version 4)
Quarter: 2015Q3

REPORT INFORMATION
  Report Type: Spontaneous
  Country: AT (occurrence: AT)
  Receive Date: 20150817
  Receipt Date: 20150922
  Transmission Date: 20151125
  Serious: Yes (Other)
  Sender: FDA-Public Use
  Company Number: AT-GILEAD-2015-0167490

PATIENT
  Age: 65 Year
  Sex: Male

DRUGS (3)
  1. LIDAPRIM                           /04140001/ [Concomitant]
  2. RITUXIMAB [Concomitant]
     Active Substance: RITUXIMAB
     Indication: B-CELL LYMPHOMA
     Dosage: UNK, CYCLICAL
     Route: 065
     Dates: start: 201503
  3. ZYDELIG [Suspect]
     Active Substance: IDELALISIB
     Indication: B-CELL LYMPHOMA
     Dosage: UNK
     Route: 065
     Dates: start: 201503

REACTIONS (11)
  - Diffuse large B-cell lymphoma [Unknown]
  - Sinusitis [Unknown]
  - Thrombocytopenia [Unknown]
  - Transaminases abnormal [Recovered/Resolved]
  - Pneumonia bacterial [Unknown]
  - Lymphoma transformation [Unknown]
  - Atypical pneumonia [Unknown]
  - Neutropenia [Unknown]
  - Liver function test abnormal [Unknown]
  - Blood alkaline phosphatase increased [Recovered/Resolved]
  - Blood test abnormal [Unknown]
